FAERS Safety Report 12211670 (Version 1)
Quarter: 2016Q1

REPORT INFORMATION
  Report Type: Spontaneous
  Country: US (occurrence: US)
  Receive Date: 20160325
  Receipt Date: 20160325
  Transmission Date: 20160526
  Serious: No
  Sender: FDA-Public Use
  Company Number: US-BAUSCH-BL-2015-018326

PATIENT
  Sex: Male

DRUGS (1)
  1. VANOS [Suspect]
     Active Substance: FLUOCINONIDE
     Indication: ECZEMA
     Dosage: APPLIED AT NIGHTTIME
     Route: 061

REACTIONS (1)
  - Eczema [Not Recovered/Not Resolved]
